FAERS Safety Report 17132544 (Version 1)
Quarter: 2019Q4

REPORT INFORMATION
  Report Type: Spontaneous
  Country: GB (occurrence: GB)
  Receive Date: 20191210
  Receipt Date: 20191210
  Transmission Date: 20200122
  Serious: Yes (Life-Threatening)
  Sender: FDA-Public Use
  Company Number: GB-TEVA-2008A-01811

PATIENT
  Age: 26 Year
  Sex: Female

DRUGS (6)
  1. CITALOPRAM [Concomitant]
     Active Substance: CITALOPRAM HYDROBROMIDE
     Indication: DEPRESSION
     Dosage: 40 MILLIGRAM DAILY;
     Route: 048
     Dates: start: 20080401, end: 20080501
  2. DIAZEPAM. [Concomitant]
     Active Substance: DIAZEPAM
  3. OLANZEPINE [Concomitant]
     Active Substance: OLANZAPINE
     Indication: DEPRESSION
     Dosage: 10 MILLIGRAM DAILY;
     Route: 048
     Dates: start: 20080528
  4. PROCYCLIDINE [Concomitant]
     Active Substance: PROCYCLIDINE
     Dosage: 5 MILLIGRAM DAILY; 5MG DAILY
     Route: 048
     Dates: start: 20080514
  5. RISPERIDONE. [Concomitant]
     Active Substance: RISPERIDONE
     Indication: DEPRESSION
     Route: 048
     Dates: end: 20080526
  6. VENLAFAXINE HYDROCHLORIDE (UNKNOWN) [Suspect]
     Active Substance: VENLAFAXINE HYDROCHLORIDE
     Indication: DEPRESSION
     Dosage: 225 MILLIGRAM DAILY;
     Route: 048
     Dates: start: 20080514, end: 20080604

REACTIONS (3)
  - Circulatory collapse [Recovered/Resolved]
  - Splenic rupture [Recovered/Resolved]
  - Hypovolaemic shock [Recovered/Resolved]

NARRATIVE: CASE EVENT DATE: 20080603
